FAERS Safety Report 24707270 (Version 1)
Quarter: 2024Q4

REPORT INFORMATION
  Report Type: Spontaneous
  Country: US (occurrence: US)
  Receive Date: 20241206
  Receipt Date: 20241206
  Transmission Date: 20250115
  Serious: No
  Sender: NOVO NORDISK
  Company Number: US-NOVOPROD-1149914

PATIENT
  Sex: Female
  Weight: 345 kg

DRUGS (1)
  1. NOVOLIN R [Suspect]
     Active Substance: INSULIN HUMAN
     Indication: Product used for unknown indication
     Dosage: TWICE A DAY
     Route: 058
     Dates: start: 20230901

REACTIONS (6)
  - Unevaluable event [Unknown]
  - Emotional disorder [Unknown]
  - Feeling hot [Unknown]
  - Hyperhidrosis [Unknown]
  - Tremor [Unknown]
  - Weight increased [Unknown]
